FAERS Safety Report 4711572-1 (Version None)
Quarter: 2005Q3

REPORT INFORMATION
  Report Type: 
  Country: None (occurrence: None)
  Receive Date: 20050706
  Receipt Date: 20050303
  Transmission Date: 20060218
  Serious: No
  Sender: FDA-Public Use
  Company Number: US118744

PATIENT
  Age: 65 Year
  Sex: Male

DRUGS (1)
  1. SENSIPAR [Suspect]
     Indication: HYPERPARATHYROIDISM PRIMARY
     Dosage: 60 MG, 2 IN 2 DAYS, PO
     Route: 048
     Dates: start: 20040701

REACTIONS (2)
  - ASTHENIA [None]
  - FATIGUE [None]
